FAERS Safety Report 6175467-1 (Version None)
Quarter: 2009Q2

REPORT INFORMATION
  Report Type: 
  Country: None (occurrence: None)
  Receive Date: 20090429
  Receipt Date: 20090422
  Transmission Date: 20091009
  Serious: Yes (Other)
  Sender: FDA-Public Use
  Company Number: TUK2009A00078

PATIENT
  Age: 77 Year
  Sex: Male

DRUGS (9)
  1. ACTOS [Suspect]
     Indication: DIABETES MELLITUS
     Dosage: 30 MG
     Dates: start: 20090115, end: 20090414
  2. ASPIRIN [Concomitant]
  3. ATORVASTATIN CALCIUM [Concomitant]
  4. BISOPROLOL FUMARATE [Concomitant]
  5. CALCICICHEW D3 [Concomitant]
  6. FUROSEMIDE [Concomitant]
  7. GLICLAZIDE (GLICLAZIDE) [Concomitant]
  8. RANITIDINE [Concomitant]
  9. SIROLIMUS (SIROLIMUS) [Concomitant]

REACTIONS (1)
  - THROMBOCYTOPENIA [None]
